FAERS Safety Report 18208623 (Version 1)
Quarter: 2020Q3

REPORT INFORMATION
  Report Type: Spontaneous
  Country: US (occurrence: US)
  Receive Date: 20200828
  Receipt Date: 20200828
  Transmission Date: 20201103
  Serious: No
  Sender: FDA-Public Use
  Company Number: US-VERTEX PHARMACEUTICALS-2020-004174

PATIENT
  Sex: Female

DRUGS (12)
  1. METOPROLOL. [Concomitant]
     Active Substance: METOPROLOL
  2. OMEPRAZOLE. [Concomitant]
     Active Substance: OMEPRAZOLE
  3. TORSEMIDE. [Suspect]
     Active Substance: TORSEMIDE
     Indication: FLUID RETENTION
     Dosage: 20 MG
     Route: 065
     Dates: start: 20200522
  4. TRIKAFTA [Suspect]
     Active Substance: ELEXACAFTOR\IVACAFTOR\TEZACAFTOR
     Indication: CYSTIC FIBROSIS
     Dosage: 2 TABS (100MG ELEXACAFTOR/50MG TEZACAFTOR/75MG IVACAFTOR) AM AND 1 TAB (150MG IVACAFTOR) PM
     Route: 048
     Dates: start: 20191126
  5. MONTELUKAST [Concomitant]
     Active Substance: MONTELUKAST SODIUM
  6. BROVANA [Concomitant]
     Active Substance: ARFORMOTEROL TARTRATE
  7. CULTURELLE [Concomitant]
     Active Substance: LACTOBACILLUS RHAMNOSUS
  8. SPIRONOLACTONE. [Suspect]
     Active Substance: SPIRONOLACTONE
     Indication: FLUID RETENTION
     Dosage: UNK
     Route: 065
     Dates: start: 20200522
  9. FERROUS SULFATE. [Concomitant]
     Active Substance: FERROUS SULFATE
  10. ZENPEP [Concomitant]
     Active Substance: PANCRELIPASE AMYLASE\PANCRELIPASE LIPASE\PANCRELIPASE PROTEASE
  11. LISINOPRIL. [Concomitant]
     Active Substance: LISINOPRIL
  12. VITAMIN D3 [Concomitant]
     Active Substance: CHOLECALCIFEROL

REACTIONS (6)
  - Lacrimation increased [Not Recovered/Not Resolved]
  - Fluid retention [Unknown]
  - Oedema [Not Recovered/Not Resolved]
  - Weight increased [Recovering/Resolving]
  - Musculoskeletal pain [Not Recovered/Not Resolved]
  - Eye swelling [Not Recovered/Not Resolved]

NARRATIVE: CASE EVENT DATE: 2019
